FAERS Safety Report 13731442 (Version 2)
Quarter: 2017Q3

REPORT INFORMATION
  Report Type: Report from Study
  Country: IT (occurrence: IT)
  Receive Date: 20170707
  Receipt Date: 20170711
  Transmission Date: 20171127
  Serious: Yes (Other)
  Sender: FDA-Public Use
  Company Number: PHHY2017IT099964

PATIENT
  Age: 67 Year
  Sex: Female

DRUGS (3)
  1. CARDICOR [Concomitant]
     Active Substance: BISOPROLOL
     Indication: HYPERTROPHIC CARDIOMYOPATHY
     Dosage: .2.5 MG, BID
     Route: 065
     Dates: start: 2005
  2. TRAMETINIB [Suspect]
     Active Substance: TRAMETINIB
     Indication: METASTATIC MALIGNANT MELANOMA
     Dosage: 300 MG, BID
     Route: 048
     Dates: start: 20160725
  3. DABRAFENIB [Suspect]
     Active Substance: DABRAFENIB
     Indication: METASTATIC MALIGNANT MELANOMA
     Dosage: 2 MG, BID
     Route: 048
     Dates: start: 20160729

REACTIONS (3)
  - Extrasystoles [Unknown]
  - Ventricular tachycardia [Not Recovered/Not Resolved]
  - Ejection fraction abnormal [Unknown]

NARRATIVE: CASE EVENT DATE: 20170613
